FAERS Safety Report 23261287 (Version 2)
Quarter: 2024Q1

REPORT INFORMATION
  Report Type: Report from Study
  Country: JP (occurrence: JP)
  Receive Date: 20231205
  Receipt Date: 20240128
  Transmission Date: 20240410
  Serious: Yes (Other)
  Sender: FDA-Public Use
  Company Number: JP-KYOWAKIRIN-2023KK018885

PATIENT
  Age: 77 Year
  Sex: Female

DRUGS (41)
  1. ROMIPLOSTIM [Suspect]
     Active Substance: ROMIPLOSTIM
     Indication: Aplastic anaemia
     Dosage: 750 MICROGRAM, QWK
     Route: 058
     Dates: start: 20201228
  2. ROMIPLOSTIM [Suspect]
     Active Substance: ROMIPLOSTIM
     Dosage: 500 MICROGRAM
     Route: 058
     Dates: start: 20200513, end: 20200513
  3. ROMIPLOSTIM [Suspect]
     Active Substance: ROMIPLOSTIM
     Dosage: 500 MICROGRAM
     Route: 058
     Dates: start: 20200519, end: 20200519
  4. ROMIPLOSTIM [Suspect]
     Active Substance: ROMIPLOSTIM
     Dosage: 500 MICROGRAM, QWK
     Route: 058
     Dates: start: 20200702, end: 20200730
  5. ROMIPLOSTIM [Suspect]
     Active Substance: ROMIPLOSTIM
     Dosage: 750 MICROGRAM, QWK
     Route: 058
     Dates: start: 20200806, end: 20200914
  6. ROMIPLOSTIM [Suspect]
     Active Substance: ROMIPLOSTIM
     Dosage: 750 MICROGRAM, QWK
     Route: 058
     Dates: start: 20200928, end: 20201012
  7. ROMIPLOSTIM [Suspect]
     Active Substance: ROMIPLOSTIM
     Dosage: 750 MICROGRAM, QWK
     Route: 058
     Dates: start: 20201022
  8. FILGRASTIM [Concomitant]
     Active Substance: FILGRASTIM
     Indication: Aplastic anaemia
     Dosage: UNK
     Route: 065
  9. PRIMPERAN [Concomitant]
     Active Substance: METOCLOPRAMIDE HYDROCHLORIDE
     Indication: Gastrooesophageal reflux disease
     Dosage: UNK
     Route: 048
  10. PRIMPERAN [Concomitant]
     Active Substance: METOCLOPRAMIDE HYDROCHLORIDE
     Dosage: UNK
     Route: 048
  11. NEXIUM [Concomitant]
     Active Substance: ESOMEPRAZOLE MAGNESIUM
     Indication: Gastrooesophageal reflux disease
     Dosage: UNK
     Route: 048
  12. REBAMIPIDE [Concomitant]
     Active Substance: REBAMIPIDE
     Indication: Gastrooesophageal reflux disease
     Dosage: UNK
     Route: 048
  13. JADENU [Concomitant]
     Active Substance: DEFERASIROX
     Indication: Haemochromatosis
     Dosage: UNK
     Route: 048
  14. Adona [Concomitant]
     Indication: Haemorrhagic diathesis
     Dosage: UNK
     Route: 048
  15. FLUCONAZOLE [Concomitant]
     Active Substance: FLUCONAZOLE
     Indication: Hypertension
     Dosage: UNK
     Route: 048
  16. LOXOPROFEN SODIUM [Concomitant]
     Active Substance: LOXOPROFEN SODIUM
     Indication: Arthralgia
     Dosage: UNK
     Route: 062
  17. FURSULTIAMINE [Concomitant]
     Active Substance: FURSULTIAMINE
     Indication: Arthralgia
     Dosage: UNK
     Route: 048
  18. MOSAPRIDE CITRATE [Concomitant]
     Active Substance: MOSAPRIDE CITRATE
     Indication: Gastrooesophageal reflux disease
     Dosage: UNK
     Route: 048
  19. MIYA-BM [Concomitant]
     Active Substance: CLOSTRIDIUM BUTYRICUM SPORES STRAIN M-55
     Indication: Diarrhoea
     Dosage: UNK
     Route: 048
  20. TRIMEBUTINE [Concomitant]
     Active Substance: TRIMEBUTINE
     Indication: Gastrooesophageal reflux disease
     Dosage: UNK
     Route: 048
  21. LEVOFLOXACIN HEMIHYDRATE [Concomitant]
     Active Substance: LEVOFLOXACIN
     Indication: Febrile neutropenia
     Dosage: UNK
     Route: 048
  22. MAGNESIUM OXIDE [Concomitant]
     Active Substance: MAGNESIUM OXIDE
     Indication: Constipation
     Dosage: UNK
     Route: 048
  23. POTASSIUM CHLORIDE [Concomitant]
     Active Substance: POTASSIUM CHLORIDE
     Indication: Hypokalaemia
     Dosage: UNK
     Route: 048
  24. CALONAL [Concomitant]
     Active Substance: ACETAMINOPHEN
     Indication: Arthralgia
     Dosage: UNK
     Route: 048
  25. LUNESTA [Concomitant]
     Active Substance: ESZOPICLONE
     Indication: Insomnia
     Dosage: UNK
     Route: 048
  26. SODIUM GUALENATE MONOHYDRATE [Concomitant]
     Active Substance: SODIUM GUALENATE MONOHYDRATE
     Indication: Product used for unknown indication
     Dosage: UNK
     Route: 065
  27. CEFCAPENE PIVOXIL HYDROCHLORIDE HYDRATE [Concomitant]
     Active Substance: CEFCAPENE PIVOXIL HYDROCHLORIDE HYDRATE
     Indication: Febrile neutropenia
     Dosage: UNK
     Route: 048
  28. ZOLPIDEM TARTRATE [Concomitant]
     Active Substance: ZOLPIDEM TARTRATE
     Indication: Insomnia
     Dosage: UNK
     Route: 048
  29. SENNOSIDES [Concomitant]
     Active Substance: SENNOSIDES
     Indication: Constipation
     Dosage: UNK
     Route: 048
  30. GLYCERIN [Concomitant]
     Active Substance: GLYCERIN
     Indication: Constipation
     Dosage: UNK
     Route: 065
  31. NEORAL [Concomitant]
     Active Substance: CYCLOSPORINE
     Indication: Aplastic anaemia
     Dosage: UNK
     Route: 048
  32. CEFTRIAXONE SODIUM [Concomitant]
     Active Substance: CEFTRIAXONE SODIUM
     Indication: Product used for unknown indication
     Dosage: UNK
     Route: 065
  33. SOLU-CORTEF [Concomitant]
     Active Substance: HYDROCORTISONE SODIUM SUCCINATE
     Indication: Product used for unknown indication
     Dosage: UNK
     Route: 065
  34. CHLORPHENIRAMINE MALEATE [Concomitant]
     Active Substance: CHLORPHENIRAMINE MALEATE
     Indication: Product used for unknown indication
     Dosage: UNK
     Route: 065
  35. MEROPENEM [Concomitant]
     Active Substance: MEROPENEM
     Indication: Product used for unknown indication
     Dosage: UNK
     Route: 065
  36. MICAFUNGIN SODIUM [Concomitant]
     Active Substance: MICAFUNGIN SODIUM
     Indication: Product used for unknown indication
     Dosage: UNK
     Route: 065
  37. MAXIPIME [Concomitant]
     Active Substance: CEFEPIME HYDROCHLORIDE
     Indication: Product used for unknown indication
     Dosage: UNK
     Route: 065
  38. HYDROXYZINE HYDROCHLORIDE [Concomitant]
     Active Substance: HYDROXYZINE HYDROCHLORIDE
     Indication: Arthralgia
     Dosage: UNK
     Route: 065
  39. CEFTRIAXONE [Concomitant]
     Active Substance: CEFTRIAXONE\CEFTRIAXONE SODIUM
     Indication: Product used for unknown indication
     Dosage: UNK
     Route: 065
  40. CEFOZOPRAN HYDROCHLORIDE [Concomitant]
     Active Substance: CEFOZOPRAN HYDROCHLORIDE
     Indication: Product used for unknown indication
     Dosage: UNK
     Route: 065
  41. PIPERACILLIN SODIUM\TAZOBACTAM SODIUM [Concomitant]
     Active Substance: PIPERACILLIN SODIUM\TAZOBACTAM SODIUM
     Indication: Product used for unknown indication
     Dosage: UNK
     Route: 065

REACTIONS (2)
  - Hypokalaemia [Recovered/Resolved]
  - Decreased appetite [Recovered/Resolved]

NARRATIVE: CASE EVENT DATE: 20200908
